FAERS Safety Report 7092992-X (Version None)
Quarter: 2010Q4

REPORT INFORMATION
  Report Type: 
  Country: None (occurrence: None)
  Receive Date: 20101110
  Receipt Date: 20090427
  Transmission Date: 20110411
  Serious: No
  Sender: FDA-Public Use
  Company Number: US-KINGPHARMUSA00001-K200900502

PATIENT
  Sex: Male
  Weight: 86.168 kg

DRUGS (6)
  1. TAPAZOLE [Suspect]
     Indication: THYROID DISORDER
     Dosage: 25 MG, QD
     Route: 048
  2. TAPAZOLE [Suspect]
     Dosage: 25 MG, QD
     Route: 048
  3. VISTARIL [Concomitant]
     Indication: PRURITUS
     Dosage: UNK, PRN
     Route: 048
  4. ALPHAGAN                           /01341101/ [Concomitant]
     Indication: GLAUCOMA
     Dosage: UNK, QD
  5. XALATAN [Concomitant]
     Indication: GLAUCOMA
     Dosage: UNK, BID
     Route: 048
  6. ALCON AXOPT [Concomitant]
     Indication: GLAUCOMA
     Dosage: UNK, QD
     Route: 048

REACTIONS (2)
  - DYSGEUSIA [None]
  - INCREASED UPPER AIRWAY SECRETION [None]
